FAERS Safety Report 13801403 (Version 4)
Quarter: 2019Q4

REPORT INFORMATION
  Report Type: Spontaneous
  Country: US (occurrence: US)
  Receive Date: 20170727
  Receipt Date: 20191108
  Transmission Date: 20200122
  Serious: Yes (Other)
  Sender: FDA-Public Use
  Company Number: US-PFIZER INC-2017326156

PATIENT
  Age: 80 Year
  Sex: Male

DRUGS (9)
  1. CIALIS [Suspect]
     Active Substance: TADALAFIL
     Indication: ERECTILE DYSFUNCTION
     Dosage: UNK
     Route: 048
     Dates: start: 20110418
  2. VALIUM [Concomitant]
     Active Substance: DIAZEPAM
     Indication: INSOMNIA
     Dosage: UNK
     Dates: end: 2018
  3. MELATONIN [Concomitant]
     Active Substance: MELATONIN
     Indication: INSOMNIA
     Dosage: UNK
     Dates: start: 2017
  4. CIALIS [Suspect]
     Active Substance: TADALAFIL
     Dosage: 20 MG, TWICE PER WEEK
     Route: 048
     Dates: start: 20110421, end: 201106
  5. ASPIRIN. [Concomitant]
     Active Substance: ASPIRIN
     Indication: PAIN
     Dosage: UNK, AS NEEDED
  6. ARICEPT [Concomitant]
     Active Substance: DONEPEZIL HYDROCHLORIDE
     Indication: MEMORY IMPAIRMENT
     Dosage: UNK
  7. VIAGRA [Suspect]
     Active Substance: SILDENAFIL CITRATE
     Indication: ERECTILE DYSFUNCTION
     Dosage: 100 MG, WEEKLY (ONCE A WEEK)
     Route: 048
     Dates: start: 20030319, end: 20130310
  8. NAMENDA XR [Concomitant]
     Active Substance: MEMANTINE HYDROCHLORIDE
     Indication: MEMORY IMPAIRMENT
     Dosage: UNK
  9. MAGNESIUM OXIDE. [Concomitant]
     Active Substance: MAGNESIUM OXIDE
     Indication: MUSCLE SPASMS
     Dosage: UNK
     Dates: start: 20181120, end: 20181224

REACTIONS (2)
  - Malignant melanoma [Unknown]
  - Melanoma recurrent [Unknown]

NARRATIVE: CASE EVENT DATE: 20140623
